FAERS Safety Report 6275168-5 (Version None)
Quarter: 2009Q3

REPORT INFORMATION
  Report Type: 
  Country: None (occurrence: None)
  Receive Date: 20090721
  Receipt Date: 20090714
  Transmission Date: 20100115
  Serious: Yes (Other)
  Sender: FDA-Public Use
  Company Number: FR-ROXANE LABORATORIES, INC.-2009-RO-00712RO

PATIENT
  Weight: 2 kg

DRUGS (5)
  1. DIGOXIN [Suspect]
     Indication: ATRIAL TACHYCARDIA
     Route: 064
  2. DIGOXIN [Suspect]
     Dosage: 0.5 MG
     Route: 064
  3. FLECAINIDE ACETATE [Suspect]
     Indication: ATRIAL TACHYCARDIA
     Dosage: 300 MG
     Route: 064
  4. AMIODARONE HCL [Suspect]
     Indication: ATRIAL TACHYCARDIA
     Route: 064
  5. AMIODARONE HCL [Suspect]
     Route: 064

REACTIONS (3)
  - DRUG INEFFECTIVE [None]
  - FOETAL DISORDER [None]
  - WOLFF-PARKINSON-WHITE SYNDROME [None]
